FAERS Safety Report 23769371 (Version 1)
Quarter: 2024Q2

REPORT INFORMATION
  Report Type: Spontaneous
  Country: PL (occurrence: PL)
  Receive Date: 20240422
  Receipt Date: 20240422
  Transmission Date: 20240716
  Serious: Yes (Other)
  Sender: FDA-Public Use
  Company Number: PL-AMGEN-POLSP2024078593

PATIENT
  Age: 14 Year
  Sex: Male

DRUGS (12)
  1. DARBEPOETIN ALFA [Suspect]
     Active Substance: DARBEPOETIN ALFA
     Indication: Aplastic anaemia
     Dosage: 40 MICROGRAM
     Route: 058
  2. DARBEPOETIN ALFA [Suspect]
     Active Substance: DARBEPOETIN ALFA
     Dosage: 40 MICROGRAM
     Route: 058
  3. DARBEPOETIN ALFA [Suspect]
     Active Substance: DARBEPOETIN ALFA
     Dosage: 40 MICROGRAM
     Route: 058
  4. DARBEPOETIN ALFA [Suspect]
     Active Substance: DARBEPOETIN ALFA
     Dosage: 40 MICROGRAM
     Route: 058
  5. FILGRASTIM [Suspect]
     Active Substance: FILGRASTIM
     Indication: Aplastic anaemia
     Dosage: 5 MICROGRAM/KILOGRAM FROM DAYS +10 TO +25
     Route: 058
  6. ERYTHROPOIETIN [Concomitant]
     Active Substance: ERYTHROPOIETIN
     Dosage: UNK
     Route: 065
  7. ELTROMBOPAG [Concomitant]
     Active Substance: ELTROMBOPAG
     Dosage: 50 MILLIGRAM, QD
     Route: 048
  8. ELTROMBOPAG [Concomitant]
     Active Substance: ELTROMBOPAG
     Dosage: 100 MILLIGRAM, QD
     Route: 048
  9. ELTROMBOPAG [Concomitant]
     Active Substance: ELTROMBOPAG
     Dosage: 150 MILLIGRAM, QD
     Route: 048
  10. ELTROMBOPAG [Concomitant]
     Active Substance: ELTROMBOPAG
     Dosage: 100 MILLIGRAM, QD
     Route: 048
  11. ELTROMBOPAG [Concomitant]
     Active Substance: ELTROMBOPAG
     Dosage: 50 MILLIGRAM, QD
     Route: 048
  12. ELTROMBOPAG [Concomitant]
     Active Substance: ELTROMBOPAG
     Dosage: 50 MILLIGRAM, QOD
     Route: 048

REACTIONS (2)
  - Bone marrow failure [Recovered/Resolved]
  - Off label use [Unknown]
